FAERS Safety Report 9613518 (Version 2)
Quarter: 2014Q1

REPORT INFORMATION
  Report Type: Spontaneous
  Country: JP (occurrence: None)
  Receive Date: 20131008
  Receipt Date: 20140325
  Transmission Date: 20141002
  Serious: Yes (Hospitalization, Other)
  Sender: FDA-Public Use
  Company Number: ABR_01155_2013

PATIENT
  Age: 53 Year
  Sex: Male
  Weight: 58 kg

DRUGS (3)
  1. GLIADEL [Suspect]
     Indication: MALIGNANT GLIOMA
     Dosage: (61.6 MG 1X INTRACEREBRAL)
     Dates: start: 20130220, end: 20130220
  2. TEMODAL [Concomitant]
  3. PREDONINE [Concomitant]

REACTIONS (6)
  - Brain oedema [None]
  - Headache [None]
  - Condition aggravated [None]
  - Gait disturbance [None]
  - Decreased appetite [None]
  - Tumour haemorrhage [None]
